FAERS Safety Report 17360624 (Version 1)
Quarter: 2020Q1

REPORT INFORMATION
  Report Type: Spontaneous
  Country: US (occurrence: US)
  Receive Date: 20200117
  Receipt Date: 20200117
  Transmission Date: 20200409
  Serious: Yes (Death, Life-Threatening, Hospitalization)
  Sender: FDA-Public Use
  Company Number: None

PATIENT
  Age: 8 Year
  Sex: Male
  Weight: 26.8 kg

DRUGS (1)
  1. BACTRIM [Suspect]
     Active Substance: SULFAMETHOXAZOLE\TRIMETHOPRIM
     Indication: OSTEOMYELITIS
     Route: 048
     Dates: end: 20131204

REACTIONS (16)
  - Swelling face [None]
  - Transaminases increased [None]
  - Bradycardia [None]
  - Pyrexia [None]
  - Abdominal pain [None]
  - Dyspnoea [None]
  - Hypercapnia [None]
  - Hypoxia [None]
  - Thrombosis [None]
  - Torsade de pointes [None]
  - Right ventricular hypertrophy [None]
  - Pneumothorax [None]
  - Pulmonary fibrosis [None]
  - Cardiac arrest [None]
  - Rash [None]
  - Procalcitonin decreased [None]

NARRATIVE: CASE EVENT DATE: 20131206
